FAERS Safety Report 4893089-7 (Version None)
Quarter: 2005Q4

REPORT INFORMATION
  Report Type: 
  Country: None (occurrence: None)
  Receive Date: 20051220
  Receipt Date: 20050105
  Transmission Date: 20060501
  Serious: Yes (Other)
  Sender: FDA-Public Use
  Company Number: PHEH2005US00556

PATIENT
  Age: 54 Year
  Sex: Male
  Weight: 106.1 kg

DRUGS (3)
  1. AREDIA [Suspect]
     Indication: MULTIPLE MYELOMA
     Dosage: INTRAMUSCULAR
     Route: 030
  2. DEXAMETHASONE [Concomitant]
  3. THALIDOMIDE (THALIDOMIDE) [Concomitant]

REACTIONS (1)
  - BONE DISORDER [None]
